FAERS Safety Report 10273517 (Version 1)
Quarter: 2014Q2

REPORT INFORMATION
  Report Type: Spontaneous
  Country: US (occurrence: None)
  Receive Date: 20140630
  Receipt Date: 20140630
  Transmission Date: 20141212
  Serious: No
  Sender: FDA-Public Use
  Company Number: None

PATIENT
  Age: 10 Year
  Sex: Female
  Weight: 35.38 kg

DRUGS (3)
  1. OCTINOXATE\OCTISALATE [Suspect]
     Indication: PHOTOSENSITIVITY REACTION
     Dates: start: 20140618, end: 20140618
  2. OCTINOXATE\OCTISALATE [Suspect]
     Indication: PROPHYLAXIS
     Dates: start: 20140618, end: 20140618
  3. METHYLPHENIDATE HCL [Concomitant]

REACTIONS (2)
  - Rash [None]
  - Application site reaction [None]
